FAERS Safety Report 6348258-6 (Version None)
Quarter: 2009Q3

REPORT INFORMATION
  Report Type: 
  Country: None (occurrence: None)
  Receive Date: 20090908
  Receipt Date: 20090826
  Transmission Date: 20100115
  Serious: Yes (Other)
  Sender: FDA-Public Use
  Company Number: SPV1-2009-01735

PATIENT
  Age: 44 Year
  Sex: Female

DRUGS (1)
  1. ADDERALL XR 10 [Suspect]
     Indication: ATTENTION DEFICIT/HYPERACTIVITY DISORDER
     Dates: start: 20071101

REACTIONS (2)
  - GLOMERULAR FILTRATION RATE DECREASED [None]
  - WEIGHT DECREASED [None]
